FAERS Safety Report 18674595 (Version 1)
Quarter: 2020Q4

REPORT INFORMATION
  Report Type: Report from Study
  Country: US (occurrence: US)
  Receive Date: 20201228
  Receipt Date: 20201228
  Transmission Date: 20210114
  Serious: Yes (Death)
  Sender: FDA-Public Use
  Company Number: US-ASTRAZENECA-2020SF73778

PATIENT
  Age: 32328 Day
  Sex: Female
  Weight: 54 kg

DRUGS (1)
  1. CALQUENCE [Suspect]
     Active Substance: ACALABRUTINIB
     Indication: NON-HODGKIN^S LYMPHOMA
     Route: 048
     Dates: start: 20200602, end: 20201218

REACTIONS (1)
  - Skull fracture [Fatal]

NARRATIVE: CASE EVENT DATE: 20201219
